FAERS Safety Report 5713004-3 (Version None)
Quarter: 2008Q2

REPORT INFORMATION
  Report Type: 
  Country: None (occurrence: None)
  Receive Date: 20080422
  Receipt Date: 20080410
  Transmission Date: 20081010
  Serious: Yes (Hospitalization)
  Sender: FDA-Public Use
  Company Number: ZA-ROCHE-558186

PATIENT
  Sex: Female

DRUGS (2)
  1. KYTRIL [Suspect]
     Route: 065
     Dates: start: 20080409, end: 20080409
  2. VALOID [Concomitant]
     Dates: start: 20080401

REACTIONS (2)
  - CARDIAC ARREST [None]
  - ILL-DEFINED DISORDER [None]
